FAERS Safety Report 5873718-1 (Version None)
Quarter: 2008Q3

REPORT INFORMATION
  Report Type: 
  Country: None (occurrence: None)
  Receive Date: 20080908
  Receipt Date: 20080828
  Transmission Date: 20090109
  Serious: No
  Sender: FDA-Public Use
  Company Number: CA-ROCHE-583950

PATIENT
  Sex: Female

DRUGS (2)
  1. ACCUTANE [Suspect]
     Indication: ACNE
     Route: 048
     Dates: start: 20080701, end: 20080828
  2. DIANE 35 [Concomitant]
     Indication: CONTRACEPTION
     Dosage: MISSED PILLS IN JULY 2008.

REACTIONS (2)
  - NO ADVERSE EVENT [None]
  - PREGNANCY [None]
